FAERS Safety Report 19767058 (Version 2)
Quarter: 2022Q1

REPORT INFORMATION
  Report Type: Spontaneous
  Country: CA (occurrence: CA)
  Receive Date: 20210830
  Receipt Date: 20220210
  Transmission Date: 20220423
  Serious: Yes (Other)
  Sender: FDA-Public Use
  Company Number: CA-PFM-2021-06575

PATIENT

DRUGS (3)
  1. PROPRANOLOL HYDROCHLORIDE [Suspect]
     Active Substance: PROPRANOLOL HYDROCHLORIDE
     Indication: Product used for unknown indication
     Dosage: 80 MG, TID (3/DAY)
     Route: 065
  2. CYCLOPENTHIAZIDE [Concomitant]
     Active Substance: CYCLOPENTHIAZIDE
     Indication: Hypertension
     Dosage: UNK
     Route: 065
  3. INDOMETHACIN SODIUM [Concomitant]
     Active Substance: INDOMETHACIN SODIUM
     Indication: Product used for unknown indication
     Dosage: UNK
     Route: 065

REACTIONS (4)
  - Eosinophilia [Recovered/Resolved]
  - Hypersensitivity pneumonitis [Recovered/Resolved]
  - Product use issue [Unknown]
  - Off label use [Unknown]
